FAERS Safety Report 10185967 (Version 3)
Quarter: 2014Q2

REPORT INFORMATION
  Report Type: Spontaneous
  Country: CA (occurrence: CA)
  Receive Date: 20140521
  Receipt Date: 20140603
  Transmission Date: 20141212
  Serious: Yes (Other)
  Sender: FDA-Public Use
  Company Number: CA-PFIZER INC-2014073215

PATIENT
  Age: 52 Year
  Sex: Female
  Weight: 76.19 kg

DRUGS (5)
  1. CHAMPIX [Suspect]
     Indication: SMOKING CESSATION THERAPY
     Dosage: STARTER PACK
     Route: 048
     Dates: start: 20140131, end: 2014
  2. CHAMPIX [Suspect]
     Dosage: 1 MG, 2X/DAY
     Route: 048
     Dates: start: 20140219, end: 20140324
  3. CHAMPIX [Suspect]
     Dosage: 1 MG, 1X/DAY
     Route: 048
     Dates: start: 2014
  4. CLARITHROMYCIN [Suspect]
     Indication: PNEUMONIA
     Dosage: 500 MG, 2X/DAY
     Route: 048
     Dates: start: 20140324, end: 20140331
  5. CEFUROXIME [Concomitant]
     Indication: PNEUMONIA
     Dosage: 500 MG, 2X/DAY
     Dates: start: 20140324, end: 20140331

REACTIONS (10)
  - Pneumonia [Not Recovered/Not Resolved]
  - Headache [Not Recovered/Not Resolved]
  - Abdominal distension [Not Recovered/Not Resolved]
  - Flatulence [Not Recovered/Not Resolved]
  - Asthenia [Not Recovered/Not Resolved]
  - Feeling of body temperature change [Not Recovered/Not Resolved]
  - Weight increased [Not Recovered/Not Resolved]
  - Back pain [Unknown]
  - Hunger [Not Recovered/Not Resolved]
  - Dizziness [Not Recovered/Not Resolved]
